FAERS Safety Report 17407120 (Version 1)
Quarter: 2020Q1

REPORT INFORMATION
  Report Type: Report from Study
  Country: TR (occurrence: TR)
  Receive Date: 20200212
  Receipt Date: 20200212
  Transmission Date: 20200409
  Serious: Yes (Other)
  Sender: FDA-Public Use
  Company Number: TR-TEVA-2020-TR-1184859

PATIENT
  Age: 0 Year
  Sex: Female

DRUGS (3)
  1. MPZ [METHYLPREDNISOLONE] [Suspect]
     Active Substance: METHYLPREDNISOLONE
     Route: 061
  2. DEXAMETHASONE. [Suspect]
     Active Substance: DEXAMETHASONE
     Route: 061
  3. BETAMETHASONE VALERATE. [Suspect]
     Active Substance: BETAMETHASONE VALERATE
     Route: 061

REACTIONS (2)
  - Cushing^s syndrome [Recovered/Resolved]
  - Adrenal insufficiency [Recovered/Resolved]
